FAERS Safety Report 5768840-4 (Version None)
Quarter: 2008Q2

REPORT INFORMATION
  Report Type: 
  Country: None (occurrence: None)
  Receive Date: 20080612
  Receipt Date: 20080312
  Transmission Date: 20081010
  Serious: No
  Sender: FDA-Public Use
  Company Number: US-ABBOTT-08P-163-0442423-00

PATIENT
  Sex: Female
  Weight: 63.56 kg

DRUGS (3)
  1. HUMIRA [Suspect]
     Indication: PSORIASIS
     Route: 058
     Dates: start: 20080214
  2. UNKNOWN ANTIBIOTICS PROPHALAXIS [Concomitant]
     Indication: CYSTITIS
  3. THE RING [Concomitant]
     Indication: CONTRACEPTION

REACTIONS (4)
  - DIZZINESS [None]
  - HEADACHE [None]
  - NASOPHARYNGITIS [None]
  - NAUSEA [None]
